FAERS Safety Report 7603721-2 (Version None)
Quarter: 2011Q2

REPORT INFORMATION
  Report Type: 
  Country: None (occurrence: None)
  Receive Date: 20110630
  Receipt Date: 20110617
  Transmission Date: 20111010
  Serious: Yes (Life-Threatening)
  Sender: FDA-Public Use
  Company Number: 11-351

PATIENT
  Age: 74 Year
  Sex: Female

DRUGS (9)
  1. FORTISIP [Concomitant]
  2. LEVOTHYROXINE [Concomitant]
  3. ACETAMINOPHEN [Concomitant]
  4. CALCICHEW D3 (CALCIUM CARBONATE, CHOLECALCIFEROL) [Concomitant]
  5. CLEXANE (ENOXAPARIN), ETORICOXIB, IBUPROFEN [Suspect]
     Indication: THROMBOSIS PROPHYLAXIS
     Dosage: 40 MG, 60 MG, 400MG 3X DAILY SUBCUTANEOUS, ORAL, ORAL
     Route: 058
     Dates: end: 20110514
  6. CLEXANE (ENOXAPARIN), ETORICOXIB, IBUPROFEN [Suspect]
     Indication: OSTEOARTHRITIS
     Dosage: 40 MG, 60 MG, 400MG 3X DAILY SUBCUTANEOUS, ORAL, ORAL
     Route: 058
     Dates: end: 20110514
  7. CLEXANE (ENOXAPARIN), ETORICOXIB, IBUPROFEN [Suspect]
     Indication: THROMBOSIS PROPHYLAXIS
     Dosage: 40 MG, 60 MG, 400MG 3X DAILY SUBCUTANEOUS, ORAL, ORAL
     Route: 058
     Dates: start: 20110502, end: 20110514
  8. CLEXANE (ENOXAPARIN), ETORICOXIB, IBUPROFEN [Suspect]
     Indication: OSTEOARTHRITIS
     Dosage: 40 MG, 60 MG, 400MG 3X DAILY SUBCUTANEOUS, ORAL, ORAL
     Route: 058
     Dates: start: 20110502, end: 20110514
  9. ALENDRONATE SODIUM [Concomitant]

REACTIONS (3)
  - HAEMOGLOBIN DECREASED [None]
  - DUODENAL ULCER [None]
  - MELAENA [None]
